FAERS Safety Report 17601904 (Version 1)
Quarter: 2020Q1

REPORT INFORMATION
  Report Type: Spontaneous
  Country: US (occurrence: US)
  Receive Date: 20200331
  Receipt Date: 20200331
  Transmission Date: 20200409
  Serious: No
  Sender: FDA-Public Use
  Company Number: US-AMGEN-USASP2020049076

PATIENT
  Sex: Female

DRUGS (1)
  1. PROLIA [Suspect]
     Active Substance: DENOSUMAB
     Indication: OSTEOPENIA
     Dosage: UNK
     Route: 065

REACTIONS (6)
  - Blood cholesterol increased [Unknown]
  - Fall [Unknown]
  - Intervertebral disc compression [Unknown]
  - Product use in unapproved indication [Unknown]
  - Thyroid hormones increased [Unknown]
  - Tendonitis [Unknown]
